FAERS Safety Report 6207773-6 (Version None)
Quarter: 2009Q2

REPORT INFORMATION
  Report Type: 
  Country: None (occurrence: None)
  Receive Date: 20090522
  Receipt Date: 20090513
  Transmission Date: 20091009
  Serious: Yes (Other)
  Sender: FDA-Public Use
  Company Number: 230064K09BRA

PATIENT
  Age: 39 Year
  Sex: Female

DRUGS (1)
  1. REBIF [Suspect]
     Dosage: 44 MCG, 3 IN 1 WEEKS
     Dates: start: 20071201

REACTIONS (4)
  - ENDOCARDITIS [None]
  - HAEMANGIOMA [None]
  - HEPATIC NEOPLASM [None]
  - PAIN [None]
